FAERS Safety Report 6285652-6 (Version None)
Quarter: 2009Q3

REPORT INFORMATION
  Report Type: 
  Country: None (occurrence: None)
  Receive Date: 20090727
  Receipt Date: 20090720
  Transmission Date: 20100115
  Serious: Yes (Hospitalization, Other)
  Sender: FDA-Public Use
  Company Number: PH-MERCK-0907PHL00016

PATIENT

DRUGS (7)
  1. JANUMET [Suspect]
     Indication: DIABETES MELLITUS
     Route: 048
  2. METFORMIN [Concomitant]
     Indication: DIABETES MELLITUS
     Route: 048
     Dates: end: 20090101
  3. METFORMIN [Concomitant]
     Route: 048
     Dates: start: 20090101
  4. PIOGLITAZONE HYDROCHLORIDE [Concomitant]
     Indication: DIABETES MELLITUS
     Route: 048
     Dates: start: 20090101, end: 20090101
  5. PIOGLITAZONE HYDROCHLORIDE [Concomitant]
     Route: 048
     Dates: start: 20090101
  6. GLICLAZIDE [Concomitant]
     Route: 065
     Dates: start: 20090101, end: 20090101
  7. GLICLAZIDE [Concomitant]
     Route: 065
     Dates: start: 20090101

REACTIONS (1)
  - DRUG HYPERSENSITIVITY [None]
